FAERS Safety Report 9201205 (Version 1)
Quarter: 2013Q2

REPORT INFORMATION
  Report Type: Spontaneous
  Country: US (occurrence: US)
  Receive Date: 20130401
  Receipt Date: 20130401
  Transmission Date: 20140414
  Serious: Yes (Other)
  Sender: FDA-Public Use
  Company Number: PHEH2013US007088

PATIENT
  Sex: Female

DRUGS (10)
  1. FEMARA [Suspect]
     Indication: BREAST CANCER
     Dosage: 2.5 MG, QD
     Route: 048
  2. LASIX [Concomitant]
  3. SINGULAIR [Concomitant]
  4. LYRICA [Concomitant]
  5. TOPAMAX [Concomitant]
  6. CALCITRATE [Concomitant]
  7. ADVAIR [Concomitant]
  8. STAHIST [Concomitant]
  9. ZOMETA [Concomitant]
     Dosage: UNK UKN, EVERY 6 MONTHS
     Route: 042
  10. TRIAMTERENE AND HYDROCHLOROTHIAZID [Concomitant]

REACTIONS (2)
  - Rheumatoid arthritis [Unknown]
  - Myalgia [Unknown]
